FAERS Safety Report 12675945 (Version 2)
Quarter: 2016Q3

REPORT INFORMATION
  Report Type: Spontaneous
  Country: US (occurrence: US)
  Receive Date: 20160823
  Receipt Date: 20160926
  Transmission Date: 20161109
  Serious: Yes (Hospitalization)
  Sender: FDA-Public Use
  Company Number: US-BAYER-2016-162313

PATIENT
  Age: 69 Year
  Sex: Female
  Weight: 89.98 kg

DRUGS (4)
  1. NEXIUM [Concomitant]
     Active Substance: ESOMEPRAZOLE MAGNESIUM
  2. PLAVIX [Interacting]
     Active Substance: CLOPIDOGREL BISULFATE
     Indication: CEREBROVASCULAR ACCIDENT
     Dosage: 75 MG, QD
     Route: 048
     Dates: start: 20160526, end: 20160602
  3. BAYER LOW DOSE [Suspect]
     Active Substance: ASPIRIN
     Indication: CEREBROVASCULAR ACCIDENT
     Dosage: 81 MG, QD
     Route: 048
     Dates: start: 20160526, end: 20160602
  4. LOVENOX [Interacting]
     Active Substance: ENOXAPARIN SODIUM
     Indication: CEREBROVASCULAR ACCIDENT
     Dosage: 40 MG, QD
     Route: 058
     Dates: start: 20160526, end: 20160602

REACTIONS (4)
  - Haemorrhagic stroke [Recovered/Resolved with Sequelae]
  - Labelled drug-drug interaction medication error [Recovered/Resolved with Sequelae]
  - Product use issue [None]
  - Drug administration error [Recovered/Resolved with Sequelae]

NARRATIVE: CASE EVENT DATE: 20160526
